FAERS Safety Report 18229970 (Version 1)
Quarter: 2020Q3

REPORT INFORMATION
  Report Type: Spontaneous
  Country: US (occurrence: US)
  Receive Date: 20200904
  Receipt Date: 20200904
  Transmission Date: 20201103
  Serious: Yes (Death, Other)
  Sender: FDA-Public Use
  Company Number: US-AMGEN-USASP2020142178

PATIENT
  Age: 71 Year
  Sex: Male

DRUGS (4)
  1. PEMBROLIZUMAB. [Concomitant]
     Active Substance: PEMBROLIZUMAB
     Indication: METASTATIC MALIGNANT MELANOMA
     Dosage: UNK
  2. TALIMOGENE LAHERPAREPVEC [Suspect]
     Active Substance: TALIMOGENE LAHERPAREPVEC
     Dosage: 4 MILLILITER, CYCLICAL
     Route: 026
  3. TALIMOGENE LAHERPAREPVEC [Suspect]
     Active Substance: TALIMOGENE LAHERPAREPVEC
     Dosage: 4 MILLILITER, CYCLICAL
     Route: 026
  4. TALIMOGENE LAHERPAREPVEC [Suspect]
     Active Substance: TALIMOGENE LAHERPAREPVEC
     Indication: METASTATIC MALIGNANT MELANOMA
     Dosage: 1 MILLILITER, CYCLICAL (FIRST INJECTION WITH 10^6 PFU/ML FOLLOWED BY 10^8 PFU/ML THREE WEEKS LATER)
     Route: 026

REACTIONS (4)
  - Metastatic malignant melanoma [Unknown]
  - Injection site cellulitis [Unknown]
  - Off label use [Unknown]
  - Death [Fatal]
